FAERS Safety Report 12464423 (Version 1)
Quarter: 2016Q2

REPORT INFORMATION
  Report Type: Spontaneous
  Country: GB (occurrence: GB)
  Receive Date: 20160614
  Receipt Date: 20160614
  Transmission Date: 20160815
  Serious: Yes (Other)
  Sender: FDA-Public Use
  Company Number: GB-BAYER-2016-115109

PATIENT
  Sex: Female

DRUGS (1)
  1. MIRENA [Suspect]
     Active Substance: LEVONORGESTREL
     Indication: MIGRAINE
     Dosage: 20 MCG/24HR, CONT
     Route: 015
     Dates: start: 20160112, end: 20160228

REACTIONS (9)
  - Acne [Recovering/Resolving]
  - Limb discomfort [Recovering/Resolving]
  - Abnormal weight gain [Recovering/Resolving]
  - Suicidal ideation [Recovering/Resolving]
  - Fatigue [Recovering/Resolving]
  - Depression [Recovering/Resolving]
  - Migraine [Recovering/Resolving]
  - Anxiety [Recovering/Resolving]
  - Panic attack [Recovering/Resolving]
